FAERS Safety Report 5061933-9 (Version None)
Quarter: 2006Q3

REPORT INFORMATION
  Report Type: 
  Country: None (occurrence: None)
  Receive Date: 20060726
  Receipt Date: 20060720
  Transmission Date: 20061208
  Serious: Yes (Death, Hospitalization)
  Sender: FDA-Public Use
  Company Number: PHNU2006DE02578

PATIENT
  Age: 87 Year
  Sex: Female

DRUGS (2)
  1. VOLTAREN [Suspect]
     Route: 048
  2. SOLOSIN [Concomitant]

REACTIONS (8)
  - BRONCHIAL OBSTRUCTION [None]
  - CARDIAC ARREST [None]
  - CARDIAC FAILURE [None]
  - HYPOXIC ENCEPHALOPATHY [None]
  - RASH [None]
  - RESPIRATORY ARREST [None]
  - RESPIRATORY FAILURE [None]
  - RESUSCITATION [None]
